FAERS Safety Report 20955623 (Version 1)
Quarter: 2022Q2

REPORT INFORMATION
  Report Type: Spontaneous
  Country: CH (occurrence: CH)
  Receive Date: 20220614
  Receipt Date: 20220614
  Transmission Date: 20220721
  Serious: Yes (Other)
  Sender: FDA-Public Use
  Company Number: None

PATIENT
  Age: 61 Year
  Sex: Male

DRUGS (34)
  1. CYCLOPHOSPHAMIDE [Suspect]
     Active Substance: CYCLOPHOSPHAMIDE
     Indication: Chemotherapy
     Dosage: 15 MG/KG, QD (D1/2); (DT 2820 MG)
     Route: 065
     Dates: start: 20210308, end: 20210308
  2. MESNA [Suspect]
     Active Substance: MESNA
     Indication: Chemotherapy
     Dosage: 15 MG/KG, QD; (DT 2820 MG)
     Route: 065
     Dates: start: 20210308, end: 20210309
  3. CLOFARABINE [Suspect]
     Active Substance: CLOFARABINE
     Indication: Chemotherapy
     Dosage: 30 MG/M2, QD;  (DT 254 MG)
     Route: 065
     Dates: start: 20210225, end: 20210228
  4. ATOVAQUONE [Suspect]
     Active Substance: ATOVAQUONE
     Indication: Product used for unknown indication
     Dosage: 1500 MG, QD
     Route: 048
     Dates: start: 20210223, end: 20210305
  5. CYCLOSPORINE [Suspect]
     Active Substance: CYCLOSPORINE
     Indication: Immunosuppression
     Dosage: UNK
     Route: 065
     Dates: end: 20210618
  6. CEFEPIME [Suspect]
     Active Substance: CEFEPIME HYDROCHLORIDE
     Indication: Product used for unknown indication
     Dosage: 2 G, TID ,ROUTE INTRAVENOUS OTHERWISE NOT SPECIFIED
     Route: 050
     Dates: start: 20210304, end: 20210305
  7. FLUDARABINE [Suspect]
     Active Substance: FLUDARABINE PHOSPHATE
     Indication: Product used for unknown indication
     Dosage: 30 MG/M2, QD (D1/5);  (DT 317.5 MG)
     Route: 065
     Dates: start: 20210308, end: 20210312
  8. FLUDARABINE [Suspect]
     Active Substance: FLUDARABINE PHOSPHATE
     Dosage: 30 MG/M2, QD (D1/5)
     Route: 065
     Dates: end: 20210312
  9. CHOLECALCIFEROL [Concomitant]
     Active Substance: CHOLECALCIFEROL
     Indication: Product used for unknown indication
     Dosage: CURRENT TREATMENT
     Route: 065
     Dates: start: 20210223
  10. CALCIUM\CHOLECALCIFEROL [Concomitant]
     Active Substance: CALCIUM\CHOLECALCIFEROL
     Indication: Product used for unknown indication
     Dosage: USUAL TREATMENT BEFORE HOSPITALISATION
     Route: 065
     Dates: start: 20210206
  11. CALCIUM\CHOLECALCIFEROL [Concomitant]
     Active Substance: CALCIUM\CHOLECALCIFEROL
     Dosage: CURRENT TREATMENT
     Dates: start: 20210223
  12. NASONEX [Concomitant]
     Active Substance: MOMETASONE FUROATE
     Indication: Product used for unknown indication
     Route: 065
     Dates: end: 20210223
  13. VALTREX [Concomitant]
     Active Substance: VALACYCLOVIR HYDROCHLORIDE
     Indication: Product used for unknown indication
     Route: 065
     Dates: start: 20210223, end: 20210301
  14. IMBRUVICA [Concomitant]
     Active Substance: IBRUTINIB
     Indication: Product used for unknown indication
     Route: 065
     Dates: end: 20210223
  15. BETNOVATE [Concomitant]
     Active Substance: BETAMETHASONE
     Indication: Product used for unknown indication
     Dosage: AS NECESSARY:CURRENT TREATMENT
     Route: 065
  16. BETNOVATE [Concomitant]
     Active Substance: BETAMETHASONE
     Dosage: UNK
     Dates: end: 20210223
  17. POTASSIUM CHLORIDE [Concomitant]
     Active Substance: POTASSIUM CHLORIDE
     Indication: Product used for unknown indication
     Route: 065
     Dates: start: 20210225, end: 20210226
  18. Neomycine [Concomitant]
     Indication: Product used for unknown indication
     Dosage: CURRENT TREATMENT
     Route: 065
     Dates: start: 20210223
  19. URSODIOL [Concomitant]
     Active Substance: URSODIOL
     Indication: Product used for unknown indication
     Dosage: CURRENT TREATMENT
     Route: 065
     Dates: start: 20210224
  20. ONDANSETRON [Concomitant]
     Active Substance: ONDANSETRON
     Indication: Product used for unknown indication
     Dosage: CURRENT TREATMENT
     Route: 065
     Dates: start: 20210225
  21. EMEND [Concomitant]
     Active Substance: APREPITANT
     Indication: Product used for unknown indication
     Dosage: CURRENT TREATMENT
     Route: 065
     Dates: start: 20210226
  22. ACYCLOVIR [Concomitant]
     Active Substance: ACYCLOVIR
     Indication: Product used for unknown indication
     Dosage: CURRENT TREATMENT
     Route: 065
     Dates: start: 20210301
  23. CETIRIZINE HCL [Concomitant]
     Active Substance: CETIRIZINE HYDROCHLORIDE
     Indication: Product used for unknown indication
     Dosage: AS NECESSARY:CURRENT TREATMENT
     Route: 065
     Dates: start: 20210303
  24. HEPARIN [Concomitant]
     Active Substance: HEPARIN SODIUM
     Indication: Product used for unknown indication
     Dosage: CURRENT TREATMENT
     Route: 065
     Dates: start: 20210224
  25. Paspertin [Concomitant]
     Indication: Product used for unknown indication
     Dosage: CURRENT TREATMENT
     Route: 065
     Dates: end: 20210227
  26. DEFITELIO [Concomitant]
     Active Substance: DEFIBROTIDE SODIUM
     Indication: Product used for unknown indication
     Route: 065
     Dates: start: 20210308, end: 20210309
  27. NEXIUM [Concomitant]
     Active Substance: ESOMEPRAZOLE MAGNESIUM
     Indication: Product used for unknown indication
     Dosage: CURRENT TREATMENT
     Route: 065
     Dates: start: 20210226
  28. ALLOPURINOL [Concomitant]
     Active Substance: ALLOPURINOL
     Indication: Product used for unknown indication
     Route: 065
     Dates: start: 20210225, end: 20210305
  29. DIMENHYDRINATE [Concomitant]
     Active Substance: DIMENHYDRINATE
     Indication: Product used for unknown indication
     Route: 065
     Dates: start: 20210227, end: 20210310
  30. LASIX [Concomitant]
     Active Substance: FUROSEMIDE
     Indication: Product used for unknown indication
     Dosage: CURRENT TREATMENT
     Route: 065
     Dates: start: 20210225
  31. LORAZEPAM [Concomitant]
     Active Substance: LORAZEPAM
     Indication: Product used for unknown indication
     Route: 065
     Dates: start: 20210225, end: 20210310
  32. DEXAMETHASONE [Concomitant]
     Active Substance: DEXAMETHASONE
     Indication: Product used for unknown indication
     Route: 065
     Dates: start: 20210305, end: 20210310
  33. PERFALGAN [Concomitant]
     Active Substance: ACETAMINOPHEN
     Indication: Product used for unknown indication
     Dosage: AS NECESSARY
     Route: 065
     Dates: start: 20210223, end: 20210301
  34. VICRIN D3 [Concomitant]
     Route: 065
     Dates: start: 20210212, end: 20210212

REACTIONS (1)
  - Liver injury [Recovered/Resolved]

NARRATIVE: CASE EVENT DATE: 20210228
